FAERS Safety Report 15518657 (Version 1)
Quarter: 2018Q4

REPORT INFORMATION
  Report Type: Spontaneous
  Country: SK (occurrence: SK)
  Receive Date: 20181017
  Receipt Date: 20181017
  Transmission Date: 20190205
  Serious: Yes (Death)
  Sender: FDA-Public Use
  Company Number: SK-MYLANLABS-2018M1078163

PATIENT
  Age: 64 Year
  Sex: Male

DRUGS (5)
  1. ACETYLSALICYLIC ACID [Concomitant]
     Active Substance: ASPIRIN
     Indication: PRODUCT USED FOR UNKNOWN INDICATION
     Dosage: UNK
  2. VULMIZOLIN [Concomitant]
     Indication: PROPHYLAXIS
     Dosage: 4 G, QD
     Route: 042
     Dates: start: 2015, end: 2015
  3. HEPARIN [Concomitant]
     Active Substance: HEPARIN SODIUM
     Indication: PRODUCT USED FOR UNKNOWN INDICATION
     Dosage: UNK
  4. CLOPIDOGREL [Suspect]
     Active Substance: CLOPIDOGREL BISULFATE
     Indication: PRODUCT USED FOR UNKNOWN INDICATION
     Dosage: UNK
  5. UNASYN [Concomitant]
     Active Substance: AMPICILLIN SODIUM\SULBACTAM SODIUM
     Indication: PRODUCT USED FOR UNKNOWN INDICATION
     Dosage: 3 G, QD
     Route: 042
     Dates: start: 2015, end: 2015

REACTIONS (5)
  - Hepatorenal failure [Fatal]
  - Cardiopulmonary failure [Fatal]
  - Respiratory failure [Fatal]
  - Pulmonary oedema [Fatal]
  - Reperfusion injury [Fatal]

NARRATIVE: CASE EVENT DATE: 2015
